FAERS Safety Report 15454664 (Version 3)
Quarter: 2018Q4

REPORT INFORMATION
  Report Type: Report from Study
  Country: DE (occurrence: DE)
  Receive Date: 20181002
  Receipt Date: 20181016
  Transmission Date: 20190204
  Serious: Yes (Other)
  Sender: FDA-Public Use
  Company Number: PHHY2018DE109888

PATIENT
  Sex: Male
  Weight: 108 kg

DRUGS (20)
  1. EXJADE [Suspect]
     Active Substance: DEFERASIROX
     Dosage: 5.32 MG/KG BODYWEIGHT/DAY=1 TABLET A 180MG+=1 TABLET A 360MG
     Route: 065
     Dates: start: 20170727, end: 20171027
  2. AMLODIPINE [Concomitant]
     Active Substance: AMLODIPINE BESYLATE
     Indication: HYPERTENSION
     Dosage: 10 DF, QD (1-0-0)
     Route: 065
  3. PANTOPRAZOLE [Concomitant]
     Active Substance: PANTOPRAZOLE
     Indication: PROPHYLAXIS
     Dosage: 40 OT, QD
     Route: 065
  4. EXJADE [Suspect]
     Active Substance: DEFERASIROX
     Dosage: 6.7 MG/KG BODYWEIGHT/DAY=2 TABLETS A 360MG
     Route: 065
     Dates: start: 20170119, end: 20170315
  5. EXJADE [Suspect]
     Active Substance: DEFERASIROX
     Dosage: 7.1 MG/KG BODYWEIGHT/DAY=2 TABLETS A 360MG
     Route: 065
     Dates: start: 20171028, end: 20171122
  6. EXJADE [Suspect]
     Active Substance: DEFERASIROX
     Dosage: 3.55 MG/KG BODYWEIGHT/DAY=1 TABLET A 360MG
     Route: 065
     Dates: start: 20180202, end: 20180508
  7. ATORVASTATIN [Concomitant]
     Active Substance: ATORVASTATIN
     Indication: ARTERIAL OCCLUSIVE DISEASE
     Dosage: 20 OT, QD
     Route: 065
  8. IBUPROFEN. [Concomitant]
     Active Substance: IBUPROFEN
     Indication: RIB FRACTURE
     Dosage: 2400 MG (1-1-1-1), QID
     Route: 065
     Dates: start: 20160721
  9. EUCERIN [Concomitant]
     Active Substance: ENSULIZOLE\EUCERIN\OCTINOXATE\OCTISALATE\TITANIUM DIOXIDE\ZINC OXIDE
     Indication: RIB FRACTURE
     Dosage: 2 DF, QD (AS NEEDED)
     Route: 065
     Dates: start: 20180108, end: 20180201
  10. EXJADE [Suspect]
     Active Substance: DEFERASIROX
     Dosage: 10.64 MG/KG BODYWEIGHT/DAY=3 TABLETS A 360MG
     Route: 065
     Dates: start: 20171123, end: 20180108
  11. EXJADE [Suspect]
     Active Substance: DEFERASIROX
     Dosage: 10.64 MG/KG BODYWEIGHT/DAY=3 TABLETS A 360MG
     Route: 065
     Dates: start: 20180628
  12. DOCITON [Concomitant]
     Active Substance: PROPRANOLOL HYDROCHLORIDE
     Indication: HYPERTENSION
     Dosage: 10 OT, QD
     Route: 065
  13. ALLOPURINOL. [Concomitant]
     Active Substance: ALLOPURINOL
     Indication: PROPHYLAXIS
     Dosage: 100 OT, QD
     Route: 065
     Dates: start: 20160322
  14. TORASEMIDE [Concomitant]
     Active Substance: TORSEMIDE
     Indication: HYPERTENSION
     Dosage: 10 OT, QD (1-0-0)
     Route: 065
  15. EXJADE [Suspect]
     Active Substance: DEFERASIROX
     Indication: MYELODYSPLASTIC SYNDROME
     Dosage: 10 MG/KG, BODYWEIGHT/DAY=2 TABLETS ? 500MG
     Route: 065
     Dates: start: 20160108, end: 20160208
  16. EXJADE [Suspect]
     Active Substance: DEFERASIROX
     Dosage: 3.55 MG/KG BODYWEIGHT/DAY=1 TABLET A 360MG
     Route: 065
     Dates: start: 20170316, end: 20170726
  17. EXJADE [Suspect]
     Active Substance: DEFERASIROX
     Dosage: 7.1 MG/KG BODYWEIGHT/DAY=2 TABLETS A 360MG
     Route: 065
     Dates: start: 20180509, end: 20180627
  18. OXYCODONE [Concomitant]
     Active Substance: OXYCODONE
     Indication: RIB FRACTURE
     Dosage: 10 OT, BID (1-0-1)
     Route: 065
     Dates: start: 20160721
  19. ACETYLSALICYLIC ACID [Concomitant]
     Active Substance: ASPIRIN
     Indication: HYPERTENSION
     Dosage: 100 OT, QD
     Route: 065
  20. EXJADE [Suspect]
     Active Substance: DEFERASIROX
     Dosage: 13 MG/KG BODYWEIGHT/DAY=3 TABLETS A 500MG
     Route: 065
     Dates: start: 20160209, end: 20170118

REACTIONS (3)
  - Pleural infection [Recovered/Resolved]
  - Chest pain [Recovered/Resolved]
  - Cough [Recovered/Resolved]

NARRATIVE: CASE EVENT DATE: 20170724
